FAERS Safety Report 5261267-3 (Version None)
Quarter: 2007Q1

REPORT INFORMATION
  Report Type: 
  Country: None (occurrence: None)
  Receive Date: 20070309
  Receipt Date: 20070301
  Transmission Date: 20070707
  Serious: Yes (Hospitalization, Other)
  Sender: FDA-Public Use
  Company Number: US-PFIZER INC-2007016609

PATIENT
  Age: 54 Year
  Sex: Female

DRUGS (6)
  1. CHANTIX [Suspect]
  2. SINEQUAN [Concomitant]
  3. TOPAMAX [Concomitant]
  4. LEXAPRO [Concomitant]
  5. BUSPAR [Concomitant]
  6. AMBIEN [Concomitant]

REACTIONS (3)
  - KNEE ARTHROPLASTY [None]
  - PAIN MANAGEMENT [None]
  - SURGERY [None]
